FAERS Safety Report 7432851-3 (Version None)
Quarter: 2011Q2

REPORT INFORMATION
  Report Type: 
  Country: None (occurrence: None)
  Receive Date: 20110422
  Receipt Date: 20110413
  Transmission Date: 20111010
  Serious: Yes (Hospitalization)
  Sender: FDA-Public Use
  Company Number: US-AMGEN-USASP2011019820

PATIENT
  Age: 62 Year
  Sex: Male
  Weight: 99 kg

DRUGS (2)
  1. EPOGEN [Suspect]
     Indication: RENAL FAILURE CHRONIC
     Dosage: 29700 IU, 3 TIMES/WK
  2. CASODEX [Concomitant]

REACTIONS (1)
  - UROSEPSIS [None]
